FAERS Safety Report 6813566-9 (Version None)
Quarter: 2010Q3

REPORT INFORMATION
  Report Type: 
  Country: None (occurrence: None)
  Receive Date: 20100701
  Receipt Date: 20100630
  Transmission Date: 20110219
  Serious: Yes (Other)
  Sender: FDA-Public Use
  Company Number: JP-ROXANE LABORATORIES, INC.-2010-RO-00778RO

PATIENT
  Age: 53 Year
  Sex: Male

DRUGS (2)
  1. RISPERIDONE [Suspect]
     Indication: SCHIZOPHRENIA
     Dosage: 6 MG
  2. RISPERIDONE [Suspect]
     Dosage: 8 MG

REACTIONS (1)
  - HYPOGLYCAEMIA [None]
